FAERS Safety Report 7274508-8 (Version None)
Quarter: 2011Q1

REPORT INFORMATION
  Report Type: 
  Country: None (occurrence: None)
  Receive Date: 20110204
  Receipt Date: 20110131
  Transmission Date: 20110831
  Serious: No
  Sender: FDA-Public Use
  Company Number: US-PFIZER INC-US-WYE-H12866110

PATIENT
  Age: 80 Year
  Sex: Male

DRUGS (3)
  1. WARFARIN SODIUM [Interacting]
     Dosage: UNK
  2. LISINOPRIL [Interacting]
     Dosage: UNK
  3. AMIODARONE HCL [Suspect]
     Dosage: UNK
     Route: 065
     Dates: end: 20080701

REACTIONS (4)
  - DYSPNOEA [None]
  - EPISTAXIS [None]
  - DRUG INTERACTION [None]
  - THYROID DISORDER [None]
